FAERS Safety Report 4707699-0 (Version None)
Quarter: 2005Q2

REPORT INFORMATION
  Report Type: 
  Country: None (occurrence: None)
  Receive Date: 20050629
  Receipt Date: 20050303
  Transmission Date: 20051028
  Serious: Yes (Other)
  Sender: FDA-Public Use
  Company Number: 05P-163-0292746-00

PATIENT
  Age: 56 Year
  Sex: Female
  Weight: 72.5755 kg

DRUGS (10)
  1. HUMIRA [Suspect]
     Indication: RHEUMATOID ARTHRITIS
     Dosage: 40 MG, 1 IN 2 WK, SUBCUTANEOUS
     Route: 058
     Dates: start: 20040901, end: 20050222
  2. METFORMIN [Concomitant]
  3. LEFLUNOMIDE [Concomitant]
  4. TENORETIC 100 [Concomitant]
  5. ZETIA [Concomitant]
  6. ASPIRIN [Concomitant]
  7. VICODIN [Concomitant]
  8. ALPRAZOLAM [Concomitant]
  9. CYCLOBENZAPRINE HYDROCHLORIDE [Concomitant]
  10. DEXAMETHASONE [Concomitant]

REACTIONS (3)
  - PRURITUS [None]
  - RASH [None]
  - SWELLING FACE [None]
